FAERS Safety Report 25589116 (Version 2)
Quarter: 2025Q3

REPORT INFORMATION
  Report Type: Spontaneous
  Country: US (occurrence: US)
  Receive Date: 20250722
  Receipt Date: 20250807
  Transmission Date: 20251020
  Serious: Yes (Disabling, Other)
  Sender: SPECGX
  Company Number: US-SPECGX-T202501214

PATIENT
  Sex: Male

DRUGS (5)
  1. ACETAMINOPHEN\HYDROCODONE [Suspect]
     Active Substance: ACETAMINOPHEN\HYDROCODONE
     Indication: Pain management
     Route: 065
  2. ACETAMINOPHEN\HYDROCODONE [Suspect]
     Active Substance: ACETAMINOPHEN\HYDROCODONE
     Dosage: 1 DOSAGE FORM, Q6H (EVERY SIX HOUR)
     Route: 048
  3. ACETAMINOPHEN\HYDROCODONE [Suspect]
     Active Substance: ACETAMINOPHEN\HYDROCODONE
     Dosage: 1 DOSAGE FORM, Q4H (1 TABLET 6 TIMES A DAY EVERY 4HOURS)
     Route: 048
  4. ALEVE [Suspect]
     Active Substance: NAPROXEN SODIUM
     Indication: Pain management
     Route: 065
  5. MS CONTIN [Concomitant]
     Active Substance: MORPHINE SULFATE
     Indication: Pain management
     Route: 065

REACTIONS (21)
  - Disability [Unknown]
  - Condition aggravated [Unknown]
  - Suicidal ideation [Recovered/Resolved]
  - Frustration tolerance decreased [Unknown]
  - Depression [Unknown]
  - Insomnia [Unknown]
  - Emotional distress [Unknown]
  - General physical health deterioration [Unknown]
  - Fear [Unknown]
  - Abdominal pain [Unknown]
  - Theft [Unknown]
  - Economic problem [Unknown]
  - Impaired work ability [Unknown]
  - Loss of personal independence in daily activities [Unknown]
  - Suspected product quality issue [Unknown]
  - Product size issue [Unknown]
  - Wrong technique in product usage process [Unknown]
  - Intentional product use issue [Unknown]
  - Therapeutic response delayed [Unknown]
  - Therapeutic response decreased [Unknown]
  - Drug ineffective [Not Recovered/Not Resolved]

NARRATIVE: CASE EVENT DATE: 20250101
